FAERS Safety Report 8592476-3 (Version None)
Quarter: 2012Q3

REPORT INFORMATION
  Report Type: 
  Country: None (occurrence: None)
  Receive Date: 20120814
  Receipt Date: 20120808
  Transmission Date: 20120928
  Serious: No
  Sender: FDA-Public Use
  Company Number: US-ASTRAZENECA-2012SE55941

PATIENT
  Age: 46 Year
  Sex: Male
  Weight: 99.8 kg

DRUGS (8)
  1. LIPITOR [Concomitant]
  2. ATENOLOL [Concomitant]
  3. OMEPRAZOLE [Suspect]
     Indication: GASTROOESOPHAGEAL REFLUX DISEASE
     Route: 048
     Dates: start: 20120801
  4. BENICAR [Concomitant]
  5. FUROSEMIDE [Concomitant]
  6. POTASSIUM CHLORIDE [Concomitant]
  7. NEXIUM [Suspect]
     Indication: GASTROOESOPHAGEAL REFLUX DISEASE
     Route: 048
  8. AMLODIPINE [Concomitant]

REACTIONS (8)
  - PRODUCTIVE COUGH [None]
  - OESOPHAGEAL DISORDER [None]
  - CHEST DISCOMFORT [None]
  - HYPOPNOEA [None]
  - CHEST PAIN [None]
  - BURNING SENSATION [None]
  - CONDITION AGGRAVATED [None]
  - DRUG EFFECT DECREASED [None]
